FAERS Safety Report 9782989 (Version 1)
Quarter: 2013Q4

REPORT INFORMATION
  Report Type: Spontaneous
  Country: US (occurrence: None)
  Receive Date: 20131223
  Receipt Date: 20131223
  Transmission Date: 20140711
  Serious: No
  Sender: FDA-Public Use
  Company Number: EUS-2011-00764

PATIENT
  Age: 4 Year
  Sex: Female

DRUGS (25)
  1. ERWINASE (ASPARAGINASE) [Suspect]
     Indication: ACUTE LYMPHOCYTIC LEUKAEMIA
     Route: 030
     Dates: start: 20110919, end: 20110919
  2. ACETAMINOPHEN (PARACETAMOL) [Concomitant]
  3. BACTRIM [Concomitant]
  4. BENADRYL (DIPHENHYDRAMINE HYDROCHLORIDE) (DIPHENHYDRAMINE HYDROCHLORIDE) [Concomitant]
  5. COLACE [Concomitant]
  6. DEXTROSE W/KCL + NS (GLUCOSE) [Concomitant]
  7. DIPHENHYDRAMINE (DIPHENHYDRAMINE ) [Concomitant]
  8. GELCLAIR (ENOXOLONE) [Concomitant]
  9. KEPPRA (LEVETIRACETAM) [Concomitant]
  10. LABETALOL (LABETALOL) [Concomitant]
  11. LABETALOL HCL (LABETALOL HYDROCHLORIDE) [Concomitant]
  12. SALT AND SODA (SODIUM CHLORIDE) [Concomitant]
  13. ZOFRAN (ONDANSETRON) [Concomitant]
  14. LEVETIRACETAM (LEVETIRACETAM) [Concomitant]
  15. MERCAPTOPURINE (MERCAPTOPURINE) [Concomitant]
  16. ORAL WOUND CARE PRODUCTS [Concomitant]
  17. SODIUM CHLORIDE [Concomitant]
  18. CYTARABINE [Concomitant]
  19. LACTATED RINGER^S (RINGER-LACTATE) [Concomitant]
  20. LIDOCAINE-PRILOCAINE (LIDOCAINE) [Concomitant]
  21. METHOTREXATE [Concomitant]
  22. VINCRISTINE [Concomitant]
  23. HEPARIN [Concomitant]
  24. ROPIVACAINE [Concomitant]
  25. ONDANSETRON HCL (ONDANSETRON HYDROCHLORIDE) [Concomitant]

REACTIONS (9)
  - Injection site pain [None]
  - Pyrexia [None]
  - Vomiting [None]
  - Mucosal inflammation [None]
  - Fatigue [None]
  - Dehydration [None]
  - Convulsion [None]
  - Constipation [None]
  - Irritability [None]
